FAERS Safety Report 4847853-0 (Version None)
Quarter: 2005Q4

REPORT INFORMATION
  Report Type: 
  Country: None (occurrence: None)
  Receive Date: 20051207
  Receipt Date: 20051128
  Transmission Date: 20060501
  Serious: Yes (Other)
  Sender: FDA-Public Use
  Company Number: PHBS2005US17501

PATIENT
  Age: 36 Year
  Sex: Female

DRUGS (3)
  1. CYCLOSPORINE [Suspect]
     Indication: RENAL TRANSPLANT
     Dates: start: 19910101
  2. IMURAN [Suspect]
     Indication: RENAL TRANSPLANT
     Dates: start: 19910101
  3. PREDNISONE [Suspect]
     Indication: RENAL TRANSPLANT
     Dates: start: 19910101

REACTIONS (11)
  - DIFFUSE LARGE B-CELL LYMPHOMA [None]
  - EPSTEIN-BARR VIRUS INFECTION [None]
  - ERYTHEMA [None]
  - GAMMOPATHY [None]
  - HERPES VIRUS INFECTION [None]
  - LIGHT CHAIN ANALYSIS ABNORMAL [None]
  - MASS [None]
  - MASS EXCISION [None]
  - OEDEMA PERIPHERAL [None]
  - PAIN [None]
  - RENAL CYST [None]
